FAERS Safety Report 14880899 (Version 1)
Quarter: 2018Q2

REPORT INFORMATION
  Report Type: Spontaneous
  Country: HR (occurrence: HR)
  Receive Date: 20180511
  Receipt Date: 20180511
  Transmission Date: 20180711
  Serious: Yes (Other)
  Sender: FDA-Public Use
  Company Number: HR-VIFOR (INTERNATIONAL) INC.-VIT-2018-04278

PATIENT
  Age: 60 Year
  Sex: Male
  Weight: 108 kg

DRUGS (11)
  1. BRIMICA GENUAIR [Concomitant]
     Active Substance: ACLIDINIUM BROMIDE\FORMOTEROL FUMARATE
     Route: 055
  2. CARVEDILOL. [Concomitant]
     Active Substance: CARVEDILOL
  3. LUPOCET [Concomitant]
     Route: 048
  4. LANITOP [Concomitant]
     Active Substance: METILDIGOXIN
     Route: 048
  5. ABASAGLAR [Concomitant]
     Active Substance: INSULIN GLARGINE
     Indication: DIABETES MELLITUS
     Route: 058
  6. EDEMID FORTE [Concomitant]
     Active Substance: FUROSEMIDE
     Route: 048
  7. CONTROLOC [Concomitant]
     Active Substance: PANTOPRAZOLE SODIUM
     Route: 048
  8. TRAMAL [Concomitant]
     Active Substance: TRAMADOL
     Route: 048
  9. MARTEFARIN [Concomitant]
     Active Substance: WARFARIN
     Route: 048
  10. VELPHORO [Suspect]
     Active Substance: FERRIC OXYHYDROXIDE
     Indication: HYPERPHOSPHATAEMIA
     Route: 048
     Dates: start: 20180317, end: 20180323
  11. NOVORAPID [Concomitant]
     Active Substance: INSULIN ASPART
     Indication: DIABETES MELLITUS
     Route: 040

REACTIONS (2)
  - Neutropenia [Recovered/Resolved]
  - Leukopenia [Recovered/Resolved]

NARRATIVE: CASE EVENT DATE: 20180319
